FAERS Safety Report 7075551-4 (Version None)
Quarter: 2010Q4

REPORT INFORMATION
  Report Type: 
  Country: None (occurrence: None)
  Receive Date: 20101030
  Receipt Date: 20101026
  Transmission Date: 20110411
  Serious: No
  Sender: FDA-Public Use
  Company Number: US-WYE-H17732610

PATIENT
  Sex: Female
  Weight: 72.64 kg

DRUGS (3)
  1. PRISTIQ [Suspect]
     Indication: DEPRESSION
     Dates: start: 20091201
  2. ULTRAM [Concomitant]
  3. TOPROL-XL [Concomitant]

REACTIONS (1)
  - DYSPEPSIA [None]
